FAERS Safety Report 4450919-0 (Version None)
Quarter: 2004Q3

REPORT INFORMATION
  Report Type: 
  Country: None (occurrence: None)
  Receive Date: 20040916
  Receipt Date: 20020102
  Transmission Date: 20050211
  Serious: Yes (Other)
  Sender: FDA-Public Use
  Company Number: US-BRISTOL-MYERS SQUIBB COMPANY-11854155

PATIENT
  Age: 37 Year
  Sex: Female

DRUGS (18)
  1. STADOL [Suspect]
     Indication: MIGRAINE
     Route: 045
     Dates: start: 19941110
  2. STADOL [Suspect]
     Indication: MIGRAINE
     Dosage: ROUTE: IM + IV
  3. ELAVIL [Concomitant]
  4. LORCET-HD [Concomitant]
  5. COMPAZINE [Concomitant]
  6. NORTRIPTYLINE HCL [Concomitant]
  7. DIAZEPAM [Concomitant]
  8. ACETAMINOPHEN [Concomitant]
  9. OXYCONTIN [Concomitant]
  10. ACETAMINOPHEN W/ CODEINE [Concomitant]
     Dosage: DOSING: 300MG/30MG
  11. LORCET-HD [Concomitant]
  12. PERCOCET [Concomitant]
  13. PROZAC [Concomitant]
  14. NORTRIPTYLINE HCL [Concomitant]
  15. IMITREX [Concomitant]
  16. HYDROCODONE + ACETAMINOPHEN [Concomitant]
  17. FIORICET [Concomitant]
  18. CARISOPRODOL [Concomitant]

REACTIONS (2)
  - DEPENDENCE [None]
  - DRUG WITHDRAWAL SYNDROME [None]
